FAERS Safety Report 9311592 (Version 1)
Quarter: 2013Q2

REPORT INFORMATION
  Report Type: Spontaneous
  Country: US (occurrence: US)
  Receive Date: 20130528
  Receipt Date: 20130528
  Transmission Date: 20140414
  Serious: No
  Sender: FDA-Public Use
  Company Number: US-PFIZER INC-2013158803

PATIENT
  Sex: Male

DRUGS (4)
  1. LIPITOR [Suspect]
     Dosage: UNK
  2. CARDURA [Suspect]
     Dosage: UNK
  3. SIMVASTATIN [Suspect]
     Dosage: UNK
  4. TOPROL XL [Suspect]
     Dosage: UNK

REACTIONS (1)
  - Drug hypersensitivity [Unknown]
